FAERS Safety Report 5224883-0 (Version None)
Quarter: 2007Q1

REPORT INFORMATION
  Report Type: 
  Country: None (occurrence: None)
  Receive Date: 20070126
  Receipt Date: 20070119
  Transmission Date: 20070707
  Serious: Yes (Hospitalization, Other)
  Sender: FDA-Public Use
  Company Number: 2006SP006860

PATIENT
  Age: 31 Year
  Sex: Female
  Weight: 48.0813 kg

DRUGS (17)
  1. PEG-INTRON [Suspect]
     Indication: HEPATITIS C
     Dosage: 64 MCG; QW; SC
     Route: 058
     Dates: start: 20061006, end: 20061103
  2. REBETOL [Suspect]
     Indication: HEPATITIS C
     Dosage: 800 MG; QD; PO
     Route: 048
     Dates: start: 20061006
  3. BIRTH CONTROL [Concomitant]
  4. SERTRALINE [Concomitant]
  5. IRON [Concomitant]
  6. PREDNISOLONE [Concomitant]
  7. FLEXERIL [Concomitant]
  8. ZANAFLEX [Concomitant]
  9. KEFLEX [Concomitant]
  10. ULTRACET [Concomitant]
  11. DARVOCET [Concomitant]
  12. PROZAC [Concomitant]
  13. PAXIL [Concomitant]
  14. WELLBUTRIN [Concomitant]
  15. REMERON [Concomitant]
  16. NEXIUM [Concomitant]
  17. LIBRAX [Concomitant]

REACTIONS (11)
  - DIPLOPIA [None]
  - DISORIENTATION [None]
  - DISTURBANCE IN ATTENTION [None]
  - EYE PAIN [None]
  - HEADACHE [None]
  - HYPOAESTHESIA [None]
  - LOSS OF CONSCIOUSNESS [None]
  - MEMORY IMPAIRMENT [None]
  - RETINITIS [None]
  - VISION BLURRED [None]
  - VITREOUS FLOATERS [None]
